FAERS Safety Report 5778073-3 (Version None)
Quarter: 2008Q2

REPORT INFORMATION
  Report Type: 
  Country: None (occurrence: None)
  Receive Date: 20080618
  Receipt Date: 20080618
  Transmission Date: 20081010
  Serious: No
  Sender: FDA-Public Use
  Company Number: None

PATIENT
  Age: 64 Year
  Sex: Male
  Weight: 97.98 kg

DRUGS (1)
  1. CAPTOPRIL [Suspect]
     Indication: HYPERTENSION
     Dosage: 25 MG BID PO
     Route: 048
     Dates: start: 20080425, end: 20080502

REACTIONS (2)
  - COUGH [None]
  - WHEEZING [None]
